FAERS Safety Report 8376553-8 (Version None)
Quarter: 2012Q2

REPORT INFORMATION
  Report Type: 
  Country: None (occurrence: None)
  Receive Date: 20120522
  Receipt Date: 20120517
  Transmission Date: 20120825
  Serious: Yes (Other)
  Sender: FDA-Public Use
  Company Number: US-AMGEN-USASP2011010131

PATIENT
  Age: 16 Year
  Sex: Female
  Weight: 100 kg

DRUGS (7)
  1. FOLIC ACID [Concomitant]
     Dosage: 1 MG, QD
     Route: 048
  2. ENBREL [Suspect]
     Dosage: 25 MG, QWK
     Dates: start: 20110202
  3. METHOTREXATE [Concomitant]
     Dosage: 25 MG, QWK
     Route: 058
  4. ENBREL [Suspect]
     Indication: ANKYLOSING SPONDYLITIS
     Dosage: 25 MG, QWK
     Route: 058
     Dates: start: 20110126, end: 20110201
  5. IBUPROFEN [Concomitant]
     Dosage: 600 MG, TID
     Route: 048
  6. INSULIN [Concomitant]
     Dosage: UNK
     Route: 058
  7. ZOFRAN [Concomitant]
     Dosage: 8 MG, QWK
     Route: 048

REACTIONS (8)
  - BLOOD KETONE BODY [None]
  - URINARY INCONTINENCE [None]
  - FEELING COLD [None]
  - MICTURITION URGENCY [None]
  - BLOOD GLUCOSE FLUCTUATION [None]
  - BLOOD GLUCOSE DECREASED [None]
  - BLOOD GLUCOSE INCREASED [None]
  - PAIN IN EXTREMITY [None]
